FAERS Safety Report 6860554-2 (Version None)
Quarter: 2010Q3

REPORT INFORMATION
  Report Type: 
  Country: None (occurrence: None)
  Receive Date: 20100714
  Receipt Date: 20100609
  Transmission Date: 20110219
  Serious: Yes (Other)
  Sender: FDA-Public Use
  Company Number: 2010-2446

PATIENT
  Age: 55 Year
  Sex: Female
  Weight: 60 kg

DRUGS (2)
  1. APO-GO PFS (APO-GO) (APOMORPHINE HYDROCHLORIDE) (APOMORPHINE HYDROCHLO [Suspect]
     Indication: PARKINSON'S DISEASE
     Dosage: 92 MG, 1 IN 1 HR), SUBCUTANEOUS
     Route: 058
     Dates: start: 20100606, end: 20100608
  2. MADOPAR (MADOPAR /00349201/) [Concomitant]

REACTIONS (3)
  - DISCOMFORT [None]
  - DYSPNOEA [None]
  - HYPOTENSION [None]
